FAERS Safety Report 21286084 (Version 2)
Quarter: 2022Q3

REPORT INFORMATION
  Report Type: Spontaneous
  Country: CA (occurrence: CA)
  Receive Date: 20220902
  Receipt Date: 20220903
  Transmission Date: 20221026
  Serious: No
  Sender: FDA-Public Use
  Company Number: CA-CELLTRION INC.-2021CA018898

PATIENT

DRUGS (16)
  1. INFLECTRA [Suspect]
     Active Substance: INFLIXIMAB-DYYB
     Indication: Colitis ulcerative
     Dosage: 432 MG, Q 0, 2, 6 WEEK, THEN EVERY 4 WEEKS
     Route: 042
     Dates: start: 20170323, end: 20170906
  2. INFLECTRA [Suspect]
     Active Substance: INFLIXIMAB-DYYB
     Dosage: 5 MG/KG, EVERY 4 WEEKS
     Route: 042
     Dates: start: 20171004, end: 20190612
  3. INFLECTRA [Suspect]
     Active Substance: INFLIXIMAB-DYYB
     Dosage: 5 MG/KG, EVERY 6 WEEKS
     Route: 042
     Dates: start: 20190723, end: 20200629
  4. INFLECTRA [Suspect]
     Active Substance: INFLIXIMAB-DYYB
     Dosage: 500 MG, EVERY 4 WEEKS
     Route: 042
     Dates: start: 20200724, end: 20210401
  5. INFLECTRA [Suspect]
     Active Substance: INFLIXIMAB-DYYB
     Dosage: 5 MG/KG EVERY 4 WEEKS, ROUND UP IF MORE THAN 50MG/ROUND DOWN IF LESS THAN 50MG
     Route: 042
     Dates: start: 20210430
  6. INFLECTRA [Suspect]
     Active Substance: INFLIXIMAB-DYYB
     Dosage: 5 MG/KG EVERY 4 WEEKS, ROUND UP IF MORE THAN 50MG/ROUND DOWN IF LESS THAN 50MG
     Route: 042
     Dates: start: 20211111
  7. INFLECTRA [Suspect]
     Active Substance: INFLIXIMAB-DYYB
     Dosage: 5 MG/KG EVERY 4 WEEKS, ROUND UP IF MORE THAN 50MG/ROUND DOWN IF LESS THAN 50MG
     Route: 042
     Dates: start: 20211209
  8. INFLECTRA [Suspect]
     Active Substance: INFLIXIMAB-DYYB
     Dosage: 5 MG/KG EVERY 4 WEEKS, ROUND UP IF MORE THAN 50MG/ROUND DOWN IF LESS THAN 50MG
     Route: 042
     Dates: start: 20220107
  9. INFLECTRA [Suspect]
     Active Substance: INFLIXIMAB-DYYB
     Dosage: 5 MG/KG, NEEDED TO RECEIVE 435 MG
     Route: 042
     Dates: start: 20220526
  10. INFLECTRA [Suspect]
     Active Substance: INFLIXIMAB-DYYB
     Dosage: 430 MG
     Route: 042
     Dates: start: 20220623, end: 20220623
  11. INFLECTRA [Suspect]
     Active Substance: INFLIXIMAB-DYYB
     Dosage: 5 MG/KG (440 MG) EVERY 4 WEEKS, ROUND UP IF MORE THAN 50MG/ROUND DOWN IF LESS THAN 50MG
     Route: 042
     Dates: start: 20220721
  12. INFLECTRA [Suspect]
     Active Substance: INFLIXIMAB-DYYB
     Dosage: 440 MG (SUPPOSED TO RECEIVE 5 MG/KG) EVERY 4 WEEKS
     Route: 042
     Dates: start: 20220818
  13. CELEBREX [Concomitant]
     Active Substance: CELECOXIB
     Indication: Arthritis
     Dosage: 100 MG
  14. CORTIFOAM [Concomitant]
     Active Substance: HYDROCORTISONE ACETATE
     Dosage: 1 DF DOSAGE NOT AVAILABLE
     Route: 065
  15. MESALAMINE [Concomitant]
     Active Substance: MESALAMINE
     Dosage: 1 DF, 2X/DAY, 2 TABLETS TWICE DAILY
     Dates: start: 20170304
  16. MESALAMINE [Concomitant]
     Active Substance: MESALAMINE
     Dosage: 1 DF, 1X/DAY
     Dates: start: 20170304

REACTIONS (4)
  - Weight increased [Not Recovered/Not Resolved]
  - Off label use [Unknown]
  - Incorrect dose administered [Unknown]
  - Weight decreased [Unknown]

NARRATIVE: CASE EVENT DATE: 20220107
